FAERS Safety Report 9699541 (Version 2)
Quarter: 2013Q4

REPORT INFORMATION
  Report Type: Spontaneous
  Country: US (occurrence: US)
  Receive Date: 20131120
  Receipt Date: 20131125
  Transmission Date: 20140711
  Serious: No
  Sender: FDA-Public Use
  Company Number: US-TEVA-369788USA

PATIENT
  Age: 33 Year
  Sex: Female
  Weight: 48.58 kg

DRUGS (3)
  1. PARAGARD 380A [Suspect]
     Indication: CONTRACEPTION
     Route: 015
     Dates: start: 20110707, end: 20121102
  2. PARAGARD 380A [Suspect]
     Route: 015
     Dates: start: 20121102
  3. VERAMIST [Concomitant]
     Indication: HYPERSENSITIVITY

REACTIONS (5)
  - Device expulsion [Recovered/Resolved]
  - Pelvic pain [Recovered/Resolved]
  - Vulvovaginal discomfort [Recovered/Resolved]
  - Vaginal discharge [Unknown]
  - Vaginal odour [Unknown]
